FAERS Safety Report 4385390-0 (Version None)
Quarter: 2004Q2

REPORT INFORMATION
  Report Type: 
  Country: None (occurrence: None)
  Receive Date: 20040622
  Receipt Date: 20040608
  Transmission Date: 20050107
  Serious: Yes (Life-Threatening, Hospitalization)
  Sender: FDA-Public Use
  Company Number: A03200401312

PATIENT
  Age: 55 Year
  Sex: Female
  Weight: 58.9676 kg

DRUGS (2)
  1. ELOXATIN [Suspect]
     Dosage: 140 MG Q2W - INTRAVENOUS NOS
     Route: 042
     Dates: start: 20040324, end: 20040324
  2. LEUCOVORIN [Concomitant]

REACTIONS (10)
  - BLOOD CREATINE PHOSPHOKINASE MB INCREASED [None]
  - BLOOD GLUCOSE INCREASED [None]
  - BLOOD PRESSURE DECREASED [None]
  - CARDIO-RESPIRATORY ARREST [None]
  - COMA [None]
  - INTERNATIONAL NORMALISED RATIO DECREASED [None]
  - RED BLOOD CELL COUNT DECREASED [None]
  - TYPE IV HYPERSENSITIVITY REACTION [None]
  - VOMITING [None]
  - WHITE BLOOD CELL COUNT INCREASED [None]
